FAERS Safety Report 19069002 (Version 2)
Quarter: 2022Q1

REPORT INFORMATION
  Report Type: Other
  Country: JP (occurrence: JP)
  Receive Date: 20210329
  Receipt Date: 20220312
  Transmission Date: 20220423
  Serious: Yes (Death)
  Sender: FDA-Public Use
  Company Number: JP-CHUGAI-A2020055073ROCHE

PATIENT
  Age: 7 Decade
  Sex: Male
  Weight: 55.2 kg

DRUGS (1)
  1. ROZLYTREK [Suspect]
     Active Substance: ENTRECTINIB
     Indication: Non-small cell lung cancer
     Route: 048
     Dates: start: 20201209, end: 20210127

REACTIONS (4)
  - Non-small cell lung cancer [Fatal]
  - Gamma-glutamyltransferase increased [Not Recovered/Not Resolved]
  - Blood alkaline phosphatase increased [Not Recovered/Not Resolved]
  - Taste disorder [Unknown]
